FAERS Safety Report 6237929-8 (Version None)
Quarter: 2009Q2

REPORT INFORMATION
  Report Type: 
  Country: None (occurrence: None)
  Receive Date: 20090621
  Receipt Date: 20090609
  Transmission Date: 20091009
  Serious: Yes (Hospitalization, Other)
  Sender: FDA-Public Use
  Company Number: PHHY2009HK22881

PATIENT
  Age: 42 Year
  Sex: Female

DRUGS (13)
  1. CYCLOSPORINE [Suspect]
     Indication: RENAL TRANSPLANT
     Dosage: UNK
     Dates: end: 20000901
  2. MYCOPHENOLATE MOFETIL [Suspect]
     Indication: RENAL TRANSPLANT
     Dosage: UNK
     Dates: end: 20000901
  3. MYCOPHENOLATE MOFETIL [Suspect]
     Dosage: 750 MG
     Dates: start: 20000901, end: 20001201
  4. MYCOPHENOLATE MOFETIL [Suspect]
     Dosage: 500 MG, BID
     Dates: start: 20001201
  5. STEROIDS NOS [Suspect]
     Indication: RENAL TRANSPLANT
  6. METHYLPREDNISOLONE [Concomitant]
     Indication: IMMUNOSUPPRESSION
     Dosage: UNK
     Dates: end: 20000901
  7. TACROLIMUS [Concomitant]
     Indication: IMMUNOSUPPRESSION
     Dosage: 4 MG O.M/3 MG P.M
     Dates: start: 20000901, end: 20001201
  8. TACROLIMUS [Concomitant]
     Dosage: 2 MG, BID
     Dates: start: 20001201
  9. TACROLIMUS [Concomitant]
     Dosage: 2 MG O.M. / 1.5 MG P.M.
  10. RAPAMYCIN [Concomitant]
     Indication: IMMUNOSUPPRESSION
     Dosage: 3 MG/DAY
  11. PREDNISOLONE [Concomitant]
     Indication: IMMUNOSUPPRESSION
     Dosage: 10 MG/DAY
     Dates: start: 20000901, end: 20001201
  12. PREDNISOLONE [Concomitant]
     Dosage: 7.5 MG/DAY
     Dates: start: 20001201
  13. PREDNISOLONE [Concomitant]
     Dosage: 5 MG/DAY

REACTIONS (10)
  - BLADDER TRANSITIONAL CELL CARCINOMA [None]
  - HAEMATURIA [None]
  - HIRSUTISM [None]
  - HYDRONEPHROSIS [None]
  - HYDROURETER [None]
  - KIDNEY TRANSPLANT REJECTION [None]
  - NEPHROURETERECTOMY [None]
  - PULMONARY OEDEMA [None]
  - TRANSURETHRAL BLADDER RESECTION [None]
  - URETERIC OBSTRUCTION [None]
